FAERS Safety Report 6636754-3 (Version None)
Quarter: 2010Q1

REPORT INFORMATION
  Report Type: 
  Country: None (occurrence: None)
  Receive Date: 20100311
  Receipt Date: 20100305
  Transmission Date: 20100710
  Serious: Yes (Death, Hospitalization)
  Sender: FDA-Public Use
  Company Number: ALL1-2010-01188

PATIENT
  Age: 60 Year
  Sex: Male

DRUGS (1)
  1. FOSRENOL [Suspect]
     Indication: HYPERPHOSPHATAEMIA
     Dosage: 1000 MG, TABLET WITH MEALS, ORAL
     Route: 048
     Dates: start: 20090701

REACTIONS (2)
  - CARDIAC ARREST [None]
  - PNEUMONIA [None]
